FAERS Safety Report 5318737-9 (Version None)
Quarter: 2007Q2

REPORT INFORMATION
  Report Type: 
  Country: None (occurrence: None)
  Receive Date: 20070508
  Receipt Date: 20070427
  Transmission Date: 20071010
  Serious: Yes (Other)
  Sender: FDA-Public Use
  Company Number: US-JNJFOC-20070500445

PATIENT
  Sex: Female
  Weight: 124.74 kg

DRUGS (4)
  1. REMICADE [Suspect]
     Indication: ANKYLOSING SPONDYLITIS
     Route: 042
  2. PREDNISONE TAB [Concomitant]
     Dosage: LESS THAN 3 MONTHS
  3. NSAID'S [Concomitant]
     Dosage: 6 MONTHS PLUS
  4. ADALIMUMAB [Concomitant]
     Dosage: 6 MONTHS PLUS

REACTIONS (1)
  - VISION BLURRED [None]
